FAERS Safety Report 24771298 (Version 4)
Quarter: 2025Q1

REPORT INFORMATION
  Report Type: Spontaneous
  Country: JP (occurrence: JP)
  Receive Date: 20241224
  Receipt Date: 20250109
  Transmission Date: 20250408
  Serious: Yes (Life-Threatening)
  Sender: PFIZER
  Company Number: JP-MLMSERVICE-20241211-PI294299-00218-1

PATIENT
  Age: 13 Year
  Sex: Male
  Weight: 42 kg

DRUGS (9)
  1. METHOTREXATE SODIUM [Suspect]
     Active Substance: METHOTREXATE SODIUM
     Indication: B precursor type acute leukaemia
     Route: 037
     Dates: start: 2022
  2. METHOTREXATE SODIUM [Suspect]
     Active Substance: METHOTREXATE SODIUM
     Indication: Acute lymphocytic leukaemia recurrent
     Dosage: ON DAY 22 OF BLOCK 2 [(660 MG/BODY) INTRAVENOUS ADMINISTRATION FOR 5 HOURS]
     Route: 042
     Dates: start: 20221004, end: 20221004
  3. BORTEZOMIB [Concomitant]
     Active Substance: BORTEZOMIB
     Indication: B precursor type acute leukaemia
     Dosage: ON DAYS 1, 4, 8 AND 11 IN BLOCK 1 AND ON DAYS 1, 4, AND 8 IN BLOCK 2
     Route: 042
  4. CYCLOPHOSPHAMIDE [Concomitant]
     Active Substance: CYCLOPHOSPHAMIDE
     Indication: B precursor type acute leukaemia
     Dosage: BLOCK 2, FROM DAYS 1 TO 5.
     Route: 042
  5. DOXORUBICIN [Concomitant]
     Active Substance: DOXORUBICIN
     Indication: B precursor type acute leukaemia
     Dosage: ON DAY 1; BLOCK 1
     Route: 042
  6. ETOPOSIDE [Concomitant]
     Active Substance: ETOPOSIDE
     Indication: B precursor type acute leukaemia
     Dosage: BLOCK 2, FROM DAYS 1 TO 5.
     Route: 042
  7. ASPARAGINASE [Concomitant]
     Active Substance: ASPARAGINASE
     Indication: B precursor type acute leukaemia
     Dosage: 10,000 U/M2 TWICE A WEEK FOR 8 DOSES
     Route: 042
  8. PREDNISONE [Concomitant]
     Active Substance: PREDNISONE
     Indication: B-cell type acute leukaemia
     Dosage: INTRAVENOUSLY FOR 28 CONSECUTIVE DAYS
     Route: 042
  9. VINCRISTINE [Concomitant]
     Active Substance: VINCRISTINE
     Indication: B precursor type acute leukaemia
     Dosage: ON DAYS 1, 8, 15 AND 22; BLOCK 1
     Route: 042

REACTIONS (2)
  - White blood cell count decreased [Recovered/Resolved]
  - Infection [Unknown]

NARRATIVE: CASE EVENT DATE: 20221005
